FAERS Safety Report 12180989 (Version 1)
Quarter: 2016Q1

REPORT INFORMATION
  Report Type: Spontaneous
  Country: US (occurrence: US)
  Receive Date: 20160315
  Receipt Date: 20160315
  Transmission Date: 20160526
  Serious: Yes (Hospitalization)
  Sender: FDA-Public Use
  Company Number: US-ALLERGAN-1638363US

PATIENT
  Age: 38 Year
  Sex: Female

DRUGS (1)
  1. VIBERZI [Suspect]
     Active Substance: ELUXADOLINE
     Indication: IRRITABLE BOWEL SYNDROME
     Dosage: 75 MG, BID
     Route: 048
     Dates: start: 20160301, end: 20160305

REACTIONS (4)
  - Vomiting [Unknown]
  - Biliary colic [Unknown]
  - Sphincter of Oddi dysfunction [Unknown]
  - Nausea [Unknown]

NARRATIVE: CASE EVENT DATE: 201603
